FAERS Safety Report 18545878 (Version 2)
Quarter: 2021Q1

REPORT INFORMATION
  Report Type: Spontaneous
  Country: US (occurrence: US)
  Receive Date: 20201125
  Receipt Date: 20210109
  Transmission Date: 20210419
  Serious: No
  Sender: FDA-Public Use
  Company Number: US-ASTRAZENECA-2020SF42717

PATIENT
  Sex: Male
  Weight: 95.3 kg

DRUGS (2)
  1. BREZTRI AEROSPHERE [Suspect]
     Active Substance: BUDESONIDE\FORMOTEROL\GLYCOPYRRONIUM
     Indication: ASTHMA
     Dosage: 160 MCG/9MCG/4.8MCG, TWO TIMES A DAY
     Route: 055
     Dates: start: 20201021
  2. SYMBICORT [Suspect]
     Active Substance: BUDESONIDE\FORMOTEROL FUMARATE DIHYDRATE
     Indication: ASTHMA
     Dosage: 160/4.5 MCG TWO TIMES A DAY
     Route: 055
     Dates: end: 20201021

REACTIONS (6)
  - Intentional device misuse [Not Recovered/Not Resolved]
  - Loss of personal independence in daily activities [Unknown]
  - Wrong technique in device usage process [Unknown]
  - Device issue [Unknown]
  - Chronic obstructive pulmonary disease [Unknown]
  - Wheezing [Recovering/Resolving]
